FAERS Safety Report 14789101 (Version 2)
Quarter: 2018Q2

REPORT INFORMATION
  Report Type: Spontaneous
  Country: DE (occurrence: DE)
  Receive Date: 20180423
  Receipt Date: 20180426
  Transmission Date: 20180711
  Serious: No
  Sender: FDA-Public Use
  Company Number: PHHY2018DE070470

PATIENT
  Sex: Female

DRUGS (1)
  1. MOMETAHEXAL [Suspect]
     Active Substance: MOMETASONE
     Indication: PRODUCT USED FOR UNKNOWN INDICATION
     Dosage: 2 PUFFS IN EACH NARE
     Route: 045
     Dates: start: 20180407, end: 20180408

REACTIONS (4)
  - Limb discomfort [Recovered/Resolved]
  - Cardiovascular disorder [Recovered/Resolved]
  - Asthenia [Recovered/Resolved]
  - Myalgia [Recovered/Resolved]

NARRATIVE: CASE EVENT DATE: 20180407
